FAERS Safety Report 8780218 (Version 1)
Quarter: 2012Q4

REPORT INFORMATION
  Report Type: Spontaneous
  Country: US (occurrence: None)
  Receive Date: 20120904
  Receipt Date: 20120904
  Transmission Date: 20130627
  Serious: Yes (Hospitalization)
  Sender: FDA-Public Use
  Company Number: None

PATIENT
  Sex: Male
  Weight: 50 kg

DRUGS (4)
  1. BEVACIZUMAB [Suspect]
     Dosage: 5th dose
  2. CARBOPLATIN [Suspect]
     Dosage: 5th dose of 6 auc dose
  3. PACLITAXEL (TAXOL) [Concomitant]
     Dosage: 5TH full stength dose
  4. KEPPRA [Concomitant]

REACTIONS (9)
  - Anaemia [None]
  - Asthenia [None]
  - Dizziness [None]
  - Dyspnoea [None]
  - Weight decreased [None]
  - Decreased appetite [None]
  - Dysgeusia [None]
  - Refusal of treatment by patient [None]
  - Platelet count decreased [None]
